FAERS Safety Report 7259455-X (Version None)
Quarter: 2011Q1

REPORT INFORMATION
  Report Type: 
  Country: None (occurrence: None)
  Receive Date: 20110129
  Receipt Date: 20100820
  Transmission Date: 20110831
  Serious: No
  Sender: FDA-Public Use
  Company Number: US-ABBOTT-10P-163-0666587-00

PATIENT
  Sex: Male

DRUGS (4)
  1. HUMIRA [Suspect]
     Indication: CROHN'S DISEASE
     Route: 058
  2. HUMIRA [Suspect]
     Route: 058
  3. HUMIRA [Suspect]
     Route: 058
  4. CIMZIA [Concomitant]
     Indication: CROHN'S DISEASE
     Dosage: ON MEDICATION FOR A SHORT WHILE DUE TO INSURANCE.

REACTIONS (3)
  - INJECTION SITE ERYTHEMA [None]
  - INJECTION SITE RASH [None]
  - INFLAMMATORY BOWEL DISEASE [None]
